FAERS Safety Report 14932110 (Version 1)
Quarter: 2018Q2

REPORT INFORMATION
  Report Type: Spontaneous
  Country: ES (occurrence: ES)
  Receive Date: 20180524
  Receipt Date: 20180524
  Transmission Date: 20180711
  Serious: Yes (Other)
  Sender: FDA-Public Use
  Company Number: ES-TEVA-2018-ES-895869

PATIENT
  Age: 38 Year
  Sex: Female

DRUGS (1)
  1. CLARITROMICINA 500 MG 14 COMPRIMIDOS [Suspect]
     Active Substance: CLARITHROMYCIN
     Indication: FURUNCLE
     Route: 048
     Dates: start: 20180315, end: 20180315

REACTIONS (2)
  - Tachycardia [Recovered/Resolved]
  - Dizziness [Recovered/Resolved]

NARRATIVE: CASE EVENT DATE: 20180315
